FAERS Safety Report 4977791-4 (Version None)
Quarter: 2006Q2

REPORT INFORMATION
  Report Type: 
  Country: None (occurrence: None)
  Receive Date: 20060420
  Receipt Date: 20051004
  Transmission Date: 20061013
  Serious: Yes (Hospitalization)
  Sender: FDA-Public Use
  Company Number: US-MERCK-0510USA03566

PATIENT
  Age: 55 Year
  Sex: Female
  Weight: 87 kg

DRUGS (6)
  1. VIOXX [Suspect]
     Indication: ARTHRITIS
     Route: 048
  2. SPIRONOLACTONE [Concomitant]
     Route: 065
  3. SYNTHROID [Concomitant]
     Route: 065
  4. DERMATOP [Concomitant]
     Route: 065
  5. LASIX [Concomitant]
     Route: 065
  6. CENTRUM SILVER [Concomitant]
     Route: 065

REACTIONS (13)
  - AORTIC VALVE STENOSIS [None]
  - CARDIOVASCULAR DISORDER [None]
  - CONSTIPATION [None]
  - COUGH [None]
  - HYPERLIPIDAEMIA [None]
  - HYPERTENSION [None]
  - NIGHT SWEATS [None]
  - ORTHOPNOEA [None]
  - PARAESTHESIA [None]
  - RESPIRATORY DISORDER [None]
  - THROMBOSIS [None]
  - VISION BLURRED [None]
  - WHEEZING [None]
